FAERS Safety Report 4971075-6 (Version None)
Quarter: 2006Q1

REPORT INFORMATION
  Report Type: 
  Country: None (occurrence: None)
  Receive Date: 20060207
  Receipt Date: 20041214
  Transmission Date: 20060701
  Serious: Yes (Hospitalization, Other)
  Sender: FDA-Public Use
  Company Number: USA041286222

PATIENT
  Sex: Female

DRUGS (1)
  1. EVISTA [Suspect]
     Indication: BONE DISORDER
     Dates: start: 20010101

REACTIONS (5)
  - DYSPNOEA EXERTIONAL [None]
  - HOT FLUSH [None]
  - PAIN IN EXTREMITY [None]
  - PULMONARY EMBOLISM [None]
  - VENOUS THROMBOSIS [None]
